FAERS Safety Report 11071507 (Version 7)
Quarter: 2020Q3

REPORT INFORMATION
  Report Type: Spontaneous
  Country: US (occurrence: US)
  Receive Date: 20150428
  Receipt Date: 20200929
  Transmission Date: 20201102
  Serious: No
  Sender: FDA-Public Use
  Company Number: US-PFIZER INC-2015121705

PATIENT
  Age: 52 Year
  Sex: Male
  Weight: 65 kg

DRUGS (5)
  1. SUTENT [Suspect]
     Active Substance: SUNITINIB MALATE
     Dosage: 50 MG, CYCLIC (TAKE 4 CAPSULES DAILY/ 2  WEEKS ON, 1 WEEK OFF, THEN REPEAT)
     Route: 048
     Dates: start: 201607
  2. SUTENT [Suspect]
     Active Substance: SUNITINIB MALATE
     Indication: RENAL CANCER STAGE IV
     Dosage: 50 MG, CYCLIC (DAILY FOR 28 DAYS, 14 DAYS OFF)
     Dates: start: 20150304
  3. PANTOPRAZOLE [Concomitant]
     Active Substance: PANTOPRAZOLE
     Dosage: UNK
  4. SUTENT [Suspect]
     Active Substance: SUNITINIB MALATE
     Dosage: 12.5 MG, UNK
  5. ENALAPRIL [Concomitant]
     Active Substance: ENALAPRIL
     Dosage: UNK

REACTIONS (13)
  - Decreased appetite [Unknown]
  - Gastrointestinal disorder [Unknown]
  - Nausea [Unknown]
  - Dry skin [Unknown]
  - Rash pruritic [Unknown]
  - Chapped lips [Unknown]
  - Burning sensation [Unknown]
  - Taste disorder [Unknown]
  - Palmar-plantar erythrodysaesthesia syndrome [Recovering/Resolving]
  - Skin exfoliation [Unknown]
  - Pain in extremity [Unknown]
  - Yellow skin [Unknown]
  - Thyroid disorder [Unknown]

NARRATIVE: CASE EVENT DATE: 2015
